FAERS Safety Report 24130861 (Version 1)
Quarter: 2024Q3

REPORT INFORMATION
  Report Type: Report from Study
  Country: IT (occurrence: IT)
  Receive Date: 20240724
  Receipt Date: 20240724
  Transmission Date: 20241016
  Serious: Yes (Hospitalization)
  Sender: AUROBINDO
  Company Number: IT-AUROBINDO-AUR-APL-2024-036381

PATIENT
  Age: 15 Year
  Sex: Female

DRUGS (5)
  1. RISPERIDONE [Suspect]
     Active Substance: RISPERIDONE
     Indication: Neurofibromatosis
     Dosage: 1 MILLIGRAM, ONCE A DAY
     Route: 065
  2. RISPERIDONE [Suspect]
     Active Substance: RISPERIDONE
     Dosage: 50 MILLIGRAM, ONCE A DAY (PROGRESSIVELY INCREASED)
     Route: 065
  3. SERTRALINE [Suspect]
     Active Substance: SERTRALINE HYDROCHLORIDE
     Indication: Neurofibromatosis
     Dosage: 50 MILLIGRAM, ONCE A DAY
     Route: 065
  4. OLANZAPINE [Suspect]
     Active Substance: OLANZAPINE
     Indication: Neurofibromatosis
     Dosage: 3.75 MILLIGRAM, ONCE A DAY
     Route: 065
  5. FLUOXETINE [Suspect]
     Active Substance: FLUOXETINE HYDROCHLORIDE
     Indication: Neurofibromatosis
     Dosage: 20 MILLIGRAM, ONCE A DAY
     Route: 065

REACTIONS (2)
  - Drug ineffective [Unknown]
  - Therapy partial responder [Unknown]
